FAERS Safety Report 24423418 (Version 1)
Quarter: 2024Q4

REPORT INFORMATION
  Report Type: Report from Study
  Country: DE (occurrence: DE)
  Receive Date: 20241010
  Receipt Date: 20241010
  Transmission Date: 20250115
  Serious: Yes (Death, Other)
  Sender: BAYER
  Company Number: DE-BAYER-2024A142826

PATIENT
  Age: 62 Year
  Sex: Male
  Weight: 90 kg

DRUGS (9)
  1. DAMOCTOCOG ALFA PEGOL [Suspect]
     Active Substance: DAMOCTOCOG ALFA PEGOL
     Indication: Prophylaxis
     Dosage: 2000 IU EVERY 3 DAYS
     Dates: start: 20210429
  2. DAMOCTOCOG ALFA PEGOL [Suspect]
     Active Substance: DAMOCTOCOG ALFA PEGOL
     Indication: Prophylaxis
     Dosage: 5000 IU
     Dates: start: 20220819
  3. DAMOCTOCOG ALFA PEGOL [Suspect]
     Active Substance: DAMOCTOCOG ALFA PEGOL
     Indication: Prophylaxis
     Dosage: 4000 IU
     Dates: start: 20220820
  4. DAMOCTOCOG ALFA PEGOL [Suspect]
     Active Substance: DAMOCTOCOG ALFA PEGOL
     Indication: Prophylaxis
     Dosage: 3000 IU
     Dates: start: 20220823
  5. DAMOCTOCOG ALFA PEGOL [Suspect]
     Active Substance: DAMOCTOCOG ALFA PEGOL
     Indication: Prophylaxis
     Dosage: 2000 IU EVERY 3 DAYS
     Dates: start: 20220906
  6. ENALAPRIL [Concomitant]
     Active Substance: ENALAPRIL
     Dosage: 2 DF, QD
     Dates: start: 20190821
  7. AMLODIPINE BESYLATE [Concomitant]
     Active Substance: AMLODIPINE BESYLATE
     Dosage: 5 MG, QD
     Dates: start: 20190821
  8. VOLTAREN [Concomitant]
     Active Substance: DICLOFENAC SODIUM
     Dosage: 46.5 MG
     Dates: start: 20190821
  9. Comirnaty [Concomitant]
     Dosage: 30 MICROGRAMS ONCE
     Dates: start: 20211126, end: 20211126

REACTIONS (1)
  - Death [Fatal]

NARRATIVE: CASE EVENT DATE: 20240101
